FAERS Safety Report 15132345 (Version 1)
Quarter: 2018Q3

REPORT INFORMATION
  Report Type: Spontaneous
  Country: US (occurrence: US)
  Receive Date: 20180711
  Receipt Date: 20180711
  Transmission Date: 20181010
  Serious: No
  Sender: FDA-Public Use
  Company Number: US-TERSERA THERAPEUTICS, LLC-2051844

PATIENT
  Age: 37 Year
  Sex: Female
  Weight: 81.6 kg

DRUGS (3)
  1. EXEMESTANE. [Concomitant]
     Active Substance: EXEMESTANE
     Route: 065
     Dates: start: 201607
  2. MULTIVITAMIN [Concomitant]
     Active Substance: VITAMINS
     Route: 065
  3. ZOLADEX [Suspect]
     Active Substance: GOSERELIN ACETATE
     Indication: BREAST CANCER
     Route: 058
     Dates: start: 201611

REACTIONS (4)
  - Injection site injury [Not Recovered/Not Resolved]
  - Surgery [Unknown]
  - Device malfunction [Not Recovered/Not Resolved]
  - Injection site hypoaesthesia [Unknown]

NARRATIVE: CASE EVENT DATE: 201612
